FAERS Safety Report 4369522-6 (Version None)
Quarter: 2004Q2

REPORT INFORMATION
  Report Type: 
  Country: None (occurrence: None)
  Receive Date: 20040527
  Receipt Date: 20040510
  Transmission Date: 20050107
  Serious: Yes (Other)
  Sender: FDA-Public Use
  Company Number: US_0405103008

PATIENT
  Age: 48 Year
  Sex: Female

DRUGS (3)
  1. HUMALOG-HUMAN INSULIN (RDNA) : 25% LISPRO, 75% NPL(LI [Suspect]
     Indication: DIABETES MELLITUS
     Dosage: 45 U/DAY
     Dates: start: 20020101
  2. AMARYL [Concomitant]
  3. GLUCOPHAGE [Concomitant]

REACTIONS (5)
  - BLOOD GLUCOSE INCREASED [None]
  - EYE HAEMORRHAGE [None]
  - PHARMACEUTICAL PRODUCT COMPLAINT [None]
  - VISUAL ACUITY REDUCED [None]
  - VISUAL DISTURBANCE [None]
